FAERS Safety Report 10659268 (Version 1)
Quarter: 2014Q4

REPORT INFORMATION
  Report Type: Spontaneous
  Country: DE (occurrence: DE)
  Receive Date: 20141217
  Receipt Date: 20141217
  Transmission Date: 20150529
  Serious: Yes (Other)
  Sender: FDA-Public Use
  Company Number: DE-ELI_LILLY_AND_COMPANY-DE201412002715

PATIENT
  Sex: Male

DRUGS (2)
  1. GEMZAR [Suspect]
     Active Substance: GEMCITABINE HYDROCHLORIDE
     Indication: PANCREATIC CARCINOMA
     Dosage: UNK, UNKNOWN
     Route: 042
     Dates: start: 201407
  2. KREON                              /00014701/ [Concomitant]
     Active Substance: PANCRELIPASE
     Dosage: UNK, UNKNOWN
     Route: 065

REACTIONS (2)
  - Venous thrombosis limb [Not Recovered/Not Resolved]
  - Optic atrophy [Not Recovered/Not Resolved]

NARRATIVE: CASE EVENT DATE: 20141010
